FAERS Safety Report 5328162-2 (Version None)
Quarter: 2007Q2

REPORT INFORMATION
  Report Type: 
  Country: None (occurrence: None)
  Receive Date: 20070514
  Receipt Date: 20070430
  Transmission Date: 20071010
  Serious: Yes (Hospitalization)
  Sender: FDA-Public Use
  Company Number: POMP-11039

PATIENT
  Age: 2 Year
  Sex: Male
  Weight: 14 kg

DRUGS (6)
  1. MYOZYME [Suspect]
     Indication: GLYCOGEN STORAGE DISEASE TYPE II
     Dosage: 20 MG/KG Q2WKS IV
     Route: 042
     Dates: start: 20060101
  2. MYOZYME [Suspect]
  3. ALPHA-GLUCOSIDASE (HUMAN, RECOMBINANT, CHO CELLS,  GENZYME)  MFR: GENZ [Suspect]
     Indication: GLYCOGEN STORAGE DISEASE TYPE II
     Dosage: 20 MG/KG Q2WKS IV
     Route: 042
     Dates: start: 20050328, end: 20060101
  4. L-CARNITINE [Concomitant]
  5. FLUTICASONE PROPIONATE [Concomitant]
  6. ALBUTEROL [Concomitant]

REACTIONS (5)
  - ATELECTASIS [None]
  - DEVICE MIGRATION [None]
  - HYPOXIA [None]
  - PYREXIA [None]
  - TRACHEAL DISORDER [None]
